FAERS Safety Report 12552624 (Version 1)
Quarter: 2016Q3

REPORT INFORMATION
  Report Type: Report from Study
  Country: GB (occurrence: GB)
  Receive Date: 20160713
  Receipt Date: 20160713
  Transmission Date: 20161109
  Serious: Yes (Death, Other)
  Sender: FDA-Public Use
  Company Number: GB-VIIV HEALTHCARE LIMITED-GB2016GSK030697

PATIENT
  Sex: Male

DRUGS (26)
  1. CODEINE PHOSPHATE [Concomitant]
     Active Substance: CODEINE PHOSPHATE
     Dosage: 15 MG, UNK
     Dates: start: 20141007
  2. INSTILLAGEL GEL [Concomitant]
     Dosage: 2 ML, UNK
  3. CO-CARELDOPA [Concomitant]
     Active Substance: CARBIDOPA\LEVODOPA
     Dosage: 12.5 UNK, TID
  4. RAMIPRIL. [Concomitant]
     Active Substance: RAMIPRIL
     Dosage: 2.5 MG, UNK
     Dates: start: 20140114
  5. LAMIVUDINE. [Concomitant]
     Active Substance: LAMIVUDINE
  6. FLUDROCORTISONE [Concomitant]
     Active Substance: FLUDROCORTISONE
     Dosage: 200 MG, UNK
  7. ETRAVIRINE [Concomitant]
     Active Substance: ETRAVIRINE
     Indication: HIV INFECTION
     Dosage: 400 MG, UNK
  8. TRIMETHOPRIM. [Concomitant]
     Active Substance: TRIMETHOPRIM
     Dosage: 100 MG, UNK
  9. CO-AMOXICLAV [Concomitant]
     Active Substance: AMOXICILLIN\CLAVULANIC ACID
     Dosage: 500 MG, UNK
  10. EPADERM OINTMENT [Concomitant]
     Dosage: UNK
     Dates: start: 20140407
  11. PREDNISOLONE. [Concomitant]
     Active Substance: PREDNISOLONE
     Dosage: 30 MG, UNK
     Dates: start: 20140114
  12. CIPROFLOXACIN. [Concomitant]
     Active Substance: CIPROFLOXACIN
     Dosage: 500 MG, BID
     Dates: start: 20140103
  13. MIDODRINE (NOS) [Concomitant]
     Dosage: 2.5 MG, UNK
  14. METFORMIN [Concomitant]
     Active Substance: METFORMIN HYDROCHLORIDE
     Dosage: 500 MG, TID
     Dates: start: 20140815, end: 20140915
  15. CITALOPRAM [Concomitant]
     Active Substance: CITALOPRAM HYDROBROMIDE
     Dosage: 10 MG, UNK
     Dates: start: 20140815, end: 20140915
  16. FUCIDIN [Concomitant]
     Active Substance: FUSIDIC ACID
  17. FLUOXETINE [Concomitant]
     Active Substance: FLUOXETINE HYDROCHLORIDE
     Dosage: 20 MG, UNK
  18. MACROGOL [Concomitant]
     Active Substance: POLYETHYLENE GLYCOLS
     Dosage: 1 UNK, UNK
  19. ENSURE PLUS LIQUID [Concomitant]
     Dosage: 1 UNK, UNK
  20. AQUEOUS IODINE ORAL SOLUTION [Concomitant]
     Dosage: 0.1 ML, UNK
     Dates: start: 20140604, end: 20140608
  21. MARAVIROC [Suspect]
     Active Substance: MARAVIROC
     Indication: HIV INFECTION
     Dosage: 300 MG, BID
     Dates: start: 20130510, end: 20141215
  22. OLIVE OIL [Concomitant]
     Active Substance: OLIVE OIL
     Dosage: UNK
     Dates: start: 20141007
  23. LAMIVUDINE. [Concomitant]
     Active Substance: LAMIVUDINE
     Dosage: 300 MG, UNK
  24. CITALOPRAM [Concomitant]
     Active Substance: CITALOPRAM HYDROBROMIDE
     Dosage: 20 MG, UNK
     Dates: start: 20140620
  25. SENNA TABS [Concomitant]
     Active Substance: SENNOSIDES A AND B
     Dosage: 2 UNK, UNK
     Dates: start: 20141006
  26. LACTULOSE. [Concomitant]
     Active Substance: LACTULOSE
     Dosage: 20 MG, BID

REACTIONS (1)
  - Pneumonia [Fatal]

NARRATIVE: CASE EVENT DATE: 20141215
